APPROVED DRUG PRODUCT: CLOBETASOL PROPIONATE
Active Ingredient: CLOBETASOL PROPIONATE
Strength: 0.05%
Dosage Form/Route: SOLUTION;TOPICAL
Application: A213139 | Product #001
Applicant: PRINSTON PHARMACEUTICAL INC
Approved: Feb 8, 2021 | RLD: No | RS: No | Type: DISCN